FAERS Safety Report 4372012-8 (Version None)
Quarter: 2004Q2

REPORT INFORMATION
  Report Type: 
  Country: None (occurrence: None)
  Receive Date: 20040602
  Receipt Date: 20040210
  Transmission Date: 20050107
  Serious: Yes (Hospitalization)
  Sender: FDA-Public Use
  Company Number: US-JNJFOC-20040101159

PATIENT
  Age: 49 Year
  Sex: Male
  Weight: 68.0396 kg

DRUGS (6)
  1. PROPULSID [Suspect]
     Indication: GASTRITIS
     Dosage: SEE IMAGE
     Dates: start: 19980827
  2. PROPULSID [Suspect]
     Indication: GASTROOESOPHAGEAL REFLUX DISEASE
     Dosage: SEE IMAGE
     Dates: start: 19980827
  3. PROPULSID [Suspect]
     Indication: GASTRITIS
     Dosage: SEE IMAGE
     Dates: start: 19980828
  4. PROPULSID [Suspect]
     Indication: GASTROOESOPHAGEAL REFLUX DISEASE
     Dosage: SEE IMAGE
     Dates: start: 19980828
  5. MYLANTA [Concomitant]
  6. ZOLOFT [Concomitant]

REACTIONS (2)
  - ABDOMINAL PAIN [None]
  - ARRHYTHMIA [None]
